FAERS Safety Report 5763140-0 (Version None)
Quarter: 2008Q2

REPORT INFORMATION
  Report Type: 
  Country: None (occurrence: None)
  Receive Date: 20080609
  Receipt Date: 20080530
  Transmission Date: 20081010
  Serious: Yes (Hospitalization, Other)
  Sender: FDA-Public Use
  Company Number: US-ABBOTT-08P-163-0454332-00

PATIENT
  Sex: Female
  Weight: 71.278 kg

DRUGS (32)
  1. HUMIRA [Suspect]
     Indication: PSORIATIC ARTHROPATHY
     Route: 050
     Dates: end: 20070917
  2. HUMIRA [Suspect]
     Dates: start: 20071125
  3. VITAMIN TAB [Concomitant]
     Indication: DRUG USE FOR UNKNOWN INDICATION
     Route: 048
     Dates: start: 20070915
  4. CALCIUM [Concomitant]
     Indication: MINERAL SUPPLEMENTATION
     Route: 048
  5. ASCORBIC ACID [Concomitant]
     Indication: DRUG USE FOR UNKNOWN INDICATION
     Route: 048
  6. FIBER [Concomitant]
     Indication: DRUG USE FOR UNKNOWN INDICATION
     Route: 048
     Dates: start: 20071001
  7. LAMOTRIGINE [Concomitant]
     Indication: DRUG USE FOR UNKNOWN INDICATION
     Route: 048
     Dates: end: 20070919
  8. ALPRAZOLAM [Concomitant]
     Indication: ANXIETY
     Route: 048
     Dates: end: 20070919
  9. RANITIDINE HYDROCHLORIDE [Concomitant]
     Indication: DRUG USE FOR UNKNOWN INDICATION
     Route: 048
     Dates: end: 20070913
  10. CELECOXIB [Concomitant]
     Indication: PSORIATIC ARTHROPATHY
     Route: 048
     Dates: end: 20070913
  11. SPIRONOLACTONE [Concomitant]
     Indication: PAIN
     Route: 048
     Dates: end: 20070913
  12. POTASSIUM CITRATE [Concomitant]
     Indication: BLOOD POTASSIUM
     Route: 048
     Dates: end: 20070919
  13. ESOMEPRAZOLE MAGNESIUM [Concomitant]
     Indication: DYSPEPSIA
     Route: 048
     Dates: end: 20070913
  14. TOPIRAMATE [Concomitant]
     Indication: DRUG USE FOR UNKNOWN INDICATION
     Route: 048
     Dates: end: 20070911
  15. TOPIRAMATE [Concomitant]
     Route: 048
     Dates: start: 20070912, end: 20070915
  16. TOPIRAMATE [Concomitant]
     Route: 048
     Dates: start: 20070916, end: 20070919
  17. QUETIAPINE FUMARATE [Concomitant]
     Indication: BIPOLAR DISORDER
     Route: 048
     Dates: end: 20070911
  18. QUETIAPINE FUMARATE [Concomitant]
     Route: 048
     Dates: start: 20070912, end: 20070915
  19. QUETIAPINE FUMARATE [Concomitant]
     Route: 048
     Dates: start: 20070916, end: 20070918
  20. INFLUENZA VIRUS VACCINE POLYVALENT [Concomitant]
     Indication: DRUG USE FOR UNKNOWN INDICATION
     Route: 050
     Dates: start: 20071015, end: 20071015
  21. ACETAMINOPHEN [Concomitant]
     Indication: DRUG USE FOR UNKNOWN INDICATION
     Route: 048
     Dates: start: 20071102, end: 20080115
  22. DIPHENHYDRAMINE HYDROCHLORIDE [Concomitant]
     Indication: INSOMNIA
     Route: 048
     Dates: end: 20080101
  23. IMMUNOGLOBULIN HUMAN ANTI-RH [Concomitant]
     Indication: PREGNANCY
     Route: 050
     Dates: start: 20070927, end: 20070927
  24. MIGLITOL [Concomitant]
     Indication: HYPERGLYCAEMIA
     Route: 048
     Dates: end: 20070913
  25. METFORMIN ER [Concomitant]
     Indication: POLYCYSTIC OVARIES
     Route: 048
     Dates: end: 20071102
  26. CYANOCOBALAMIN [Concomitant]
     Indication: ANAEMIA
     Route: 050
     Dates: start: 20070726, end: 20070726
  27. FOLIC ACID [Concomitant]
     Indication: DRUG USE FOR UNKNOWN INDICATION
     Route: 048
     Dates: start: 20070915
  28. B-KOMPLEX [Concomitant]
     Indication: DRUG USE FOR UNKNOWN INDICATION
     Route: 048
  29. FLUOXETINE HYDROCHLORIDE [Concomitant]
     Indication: BIPOLAR DISORDER
     Route: 048
     Dates: start: 20080323
  30. SODIUM CHLORIDE [Concomitant]
     Indication: DRUG USE FOR UNKNOWN INDICATION
     Route: 055
     Dates: start: 20071101
  31. BETAMETHASONE [Concomitant]
     Indication: DRUG USE FOR UNKNOWN INDICATION
     Route: 050
     Dates: start: 20080206, end: 20080208
  32. DHA [Concomitant]
     Indication: DRUG USE FOR UNKNOWN INDICATION
     Route: 048
     Dates: start: 20070915

REACTIONS (8)
  - FLATULENCE [None]
  - HYPERTHERMIA [None]
  - LOCALISED INFECTION [None]
  - LYMPHADENOPATHY [None]
  - MIGRAINE [None]
  - NASOPHARYNGITIS [None]
  - PRE-ECLAMPSIA [None]
  - PREMATURE LABOUR [None]
